FAERS Safety Report 5401180-1 (Version None)
Quarter: 2007Q3

REPORT INFORMATION
  Report Type: 
  Country: None (occurrence: None)
  Receive Date: 20070731
  Receipt Date: 20070723
  Transmission Date: 20080115
  Serious: Yes (Other)
  Sender: FDA-Public Use
  Company Number: PHBS2007JP12438

PATIENT
  Weight: 35 kg

DRUGS (3)
  1. NEORAL [Suspect]
     Indication: APLASIA PURE RED CELL
     Dosage: 175 MG/DAY
     Route: 048
  2. BORRAGINOL-N [Suspect]
     Indication: HAEMORRHOIDS
     Route: 061
  3. PREDNISOLONE [Concomitant]
     Indication: APLASIA PURE RED CELL
     Dosage: 15 MG/DAY
     Route: 065

REACTIONS (2)
  - HAEMATURIA [None]
  - MELAENA [None]
